FAERS Safety Report 13910631 (Version 1)
Quarter: 2017Q3

REPORT INFORMATION
  Report Type: Spontaneous
  Country: US (occurrence: US)
  Receive Date: 20170828
  Receipt Date: 20170828
  Transmission Date: 20171127
  Serious: Yes (Hospitalization)
  Sender: FDA-Public Use
  Company Number: US-MYLANLABS-2017M1052783

PATIENT
  Age: 76 Year
  Sex: Male

DRUGS (1)
  1. PROPRANOLOL [Suspect]
     Active Substance: PROPRANOLOL HYDROCHLORIDE
     Indication: PRODUCT USED FOR UNKNOWN INDICATION
     Dosage: 2 DOSES OF 10MG IN A 3-AND-A-HALF-HOUR INTERVAL
     Route: 048

REACTIONS (1)
  - Electrocardiogram PR prolongation [Recovered/Resolved]
